FAERS Safety Report 10744747 (Version 3)
Quarter: 2015Q1

REPORT INFORMATION
  Report Type: Spontaneous
  Country: US (occurrence: US)
  Receive Date: 20150128
  Receipt Date: 20150220
  Transmission Date: 20150721
  Serious: Yes (Hospitalization, Other)
  Sender: FDA-Public Use
  Company Number: US-UNITED THERAPEUTICS-UNT-2015-000702

PATIENT
  Age: 73 Year
  Sex: Male
  Weight: 122.4 kg

DRUGS (3)
  1. TYVASO [Suspect]
     Active Substance: TREPROSTINIL
     Dosage: 54-72 ?G, QID
  2. LASIX [Suspect]
     Active Substance: FUROSEMIDE
     Indication: PRODUCT USED FOR UNKNOWN INDICATION
  3. TYVASO [Suspect]
     Active Substance: TREPROSTINIL
     Indication: PULMONARY HYPERTENSION
     Dosage: 18-54 ?G, QID
     Dates: start: 20111213

REACTIONS (6)
  - Rash [Unknown]
  - Drug dose omission [Unknown]
  - Device issue [Unknown]
  - Fluid retention [Unknown]
  - Diabetes mellitus [Unknown]
  - Skin irritation [Unknown]

NARRATIVE: CASE EVENT DATE: 201501
